FAERS Safety Report 10594392 (Version 3)
Quarter: 2015Q3

REPORT INFORMATION
  Report Type: Report from Study
  Country: US (occurrence: US)
  Receive Date: 20141119
  Receipt Date: 20150818
  Transmission Date: 20151125
  Serious: No
  Sender: FDA-Public Use
  Company Number: US-GILEAD-2014-0122984

PATIENT
  Age: 41 Year
  Sex: Female

DRUGS (14)
  1. CLONAZEPAM. [Concomitant]
     Active Substance: CLONAZEPAM
  2. DIGOXIN. [Concomitant]
     Active Substance: DIGOXIN
  3. MORPHINE SULFATE. [Concomitant]
     Active Substance: MORPHINE SULFATE
  4. MIRENA [Concomitant]
     Active Substance: LEVONORGESTREL
  5. COUMADIN [Concomitant]
     Active Substance: WARFARIN SODIUM
  6. CYCLOBENZAPRINE [Concomitant]
     Active Substance: CYCLOBENZAPRINE
  7. ZANTAC [Concomitant]
     Active Substance: RANITIDINE HYDROCHLORIDE
  8. AMBRISENTAN [Suspect]
     Active Substance: AMBRISENTAN
     Indication: PULMONARY HYPERTENSION
     Dosage: 10 MG, QD
     Route: 065
     Dates: start: 20140731
  9. CLARITIN                           /00984601/ [Concomitant]
  10. SPIRONOLACTONE. [Concomitant]
     Active Substance: SPIRONOLACTONE
  11. LASIX [Concomitant]
     Active Substance: FUROSEMIDE
  12. PREDNISONE. [Concomitant]
     Active Substance: PREDNISONE
  13. ALBUTEROL SULFATE. [Concomitant]
     Active Substance: ALBUTEROL SULFATE
  14. ADCIRCA [Suspect]
     Active Substance: TADALAFIL

REACTIONS (3)
  - Headache [Not Recovered/Not Resolved]
  - Gastrooesophageal reflux disease [Not Recovered/Not Resolved]
  - Ocular hyperaemia [Not Recovered/Not Resolved]

NARRATIVE: CASE EVENT DATE: 20140901
